FAERS Safety Report 11506704 (Version 1)
Quarter: 2015Q3

REPORT INFORMATION
  Report Type: Spontaneous
  Country: US (occurrence: US)
  Receive Date: 20150915
  Receipt Date: 20150915
  Transmission Date: 20151125
  Serious: No
  Sender: FDA-Public Use
  Company Number: US-ROCHE-803606

PATIENT
  Sex: Female

DRUGS (4)
  1. COPEGUS [Suspect]
     Active Substance: RIBAVIRIN
     Indication: CHRONIC HEPATITIS C
     Dosage: FREQUENCY: DAILY IN DEVIDED DOSES.
     Route: 048
  2. PEGASYS [Suspect]
     Active Substance: PEGINTERFERON ALFA-2A
     Indication: CHRONIC HEPATITIS C
     Route: 058
  3. LEXAPRO [Concomitant]
     Active Substance: ESCITALOPRAM OXALATE
     Dosage: FREQUENCY: DAILY
     Route: 065
  4. LEXAPRO [Concomitant]
     Active Substance: ESCITALOPRAM OXALATE
     Indication: DEPRESSION
     Dosage: FREQUENCY: DAILY
     Route: 065

REACTIONS (9)
  - Pruritus [Unknown]
  - Drug dose omission [Unknown]
  - Rash erythematous [Unknown]
  - Platelet count decreased [Unknown]
  - Depression [Unknown]
  - Peripheral swelling [Unknown]
  - Fatigue [Unknown]
  - Feeling hot [Unknown]
  - White blood cell count decreased [Unknown]
